FAERS Safety Report 10247687 (Version 2)
Quarter: 2014Q3

REPORT INFORMATION
  Report Type: Spontaneous
  Country: IT (occurrence: IT)
  Receive Date: 20140619
  Receipt Date: 20140707
  Transmission Date: 20150326
  Serious: Yes (Life-Threatening, Hospitalization)
  Sender: FDA-Public Use
  Company Number: IT-PFIZER INC-2014168261

PATIENT
  Age: 64 Year
  Sex: Female

DRUGS (3)
  1. SEROQUEL [Suspect]
     Active Substance: QUETIAPINE FUMARATE
     Dosage: MASSIVE DOSES
     Route: 048
     Dates: start: 20140423, end: 20140423
  2. HALCION [Suspect]
     Active Substance: TRIAZOLAM
     Dosage: MASSIVE DOSES
     Route: 048
     Dates: start: 20140423, end: 20140423
  3. PAROXETINA ACTAVIS [Suspect]
     Active Substance: PAROXETINE HYDROCHLORIDE
     Indication: DEPRESSION
     Dosage: MASSIVE DOSES
     Route: 048
     Dates: start: 20140423, end: 20140423

REACTIONS (4)
  - Sopor [Recovering/Resolving]
  - Poisoning [Recovering/Resolving]
  - Respiratory failure [Recovering/Resolving]
  - Suicide attempt [Recovering/Resolving]

NARRATIVE: CASE EVENT DATE: 20140423
